FAERS Safety Report 22240676 (Version 6)
Quarter: 2024Q1

REPORT INFORMATION
  Report Type: Spontaneous
  Country: US (occurrence: US)
  Receive Date: 20230421
  Receipt Date: 20240219
  Transmission Date: 20240410
  Serious: Yes (Other)
  Sender: FDA-Public Use
  Company Number: US-PFIZER INC-202101878842

PATIENT
  Age: 77 Year
  Sex: Female

DRUGS (1)
  1. IBRANCE [Suspect]
     Active Substance: PALBOCICLIB
     Dosage: 75 MG, CYCLIC (DAILY. ON DAYS 1-21 OF EACH 28-DAY CYCLE. TAKE WHOLE WITH WATER, WITH OR W/O FOOD)
     Route: 048

REACTIONS (8)
  - Second primary malignancy [Unknown]
  - Gastric cancer [Unknown]
  - Product dose omission issue [Unknown]
  - Neoplasm recurrence [Unknown]
  - Pain [Unknown]
  - Malaise [Unknown]
  - Lung disorder [Unknown]
  - Memory impairment [Unknown]

NARRATIVE: CASE EVENT DATE: 20231128
